FAERS Safety Report 7830795-6 (Version None)
Quarter: 2011Q4

REPORT INFORMATION
  Report Type: 
  Country: None (occurrence: None)
  Receive Date: 20111021
  Receipt Date: 20111014
  Transmission Date: 20120403
  Serious: Yes (Hospitalization, Other)
  Sender: FDA-Public Use
  Company Number: US-GLAXOSMITHKLINE-A0949413A

PATIENT
  Age: 85 Year
  Sex: Female

DRUGS (3)
  1. PROMACTA [Suspect]
     Indication: IDIOPATHIC THROMBOCYTOPENIC PURPURA
     Dates: start: 20110501
  2. IMMUNE GLOBULIN INTRAVENOUS (HUMAN) [Concomitant]
     Indication: IDIOPATHIC THROMBOCYTOPENIC PURPURA
  3. ROMIPLOSTIM [Concomitant]
     Indication: IDIOPATHIC THROMBOCYTOPENIC PURPURA

REACTIONS (10)
  - HEADACHE [None]
  - PAIN IN EXTREMITY [None]
  - UROSEPSIS [None]
  - BACK PAIN [None]
  - NIGHT SWEATS [None]
  - BONE PAIN [None]
  - CONFUSIONAL STATE [None]
  - NOCTURIA [None]
  - MYALGIA [None]
  - ARTHRALGIA [None]
